FAERS Safety Report 11338178 (Version 1)
Quarter: 2015Q3

REPORT INFORMATION
  Report Type: Spontaneous
  Country: US (occurrence: US)
  Receive Date: 20150803
  Receipt Date: 20150803
  Transmission Date: 20151125
  Serious: No
  Sender: FDA-Public Use
  Company Number: US-ELI_LILLY_AND_COMPANY-US201007003745

PATIENT
  Age: 57 Year
  Sex: Female

DRUGS (5)
  1. NORCO [Concomitant]
     Active Substance: ACETAMINOPHEN\HYDROCODONE BITARTRATE
  2. OLANZAPINE. [Suspect]
     Active Substance: OLANZAPINE
     Indication: NERVOUS SYSTEM DISORDER
     Dosage: 5 MG, UNK
     Dates: start: 1970, end: 2009
  3. CLONIDINE. [Concomitant]
     Active Substance: CLONIDINE
  4. SEROQUEL [Concomitant]
     Active Substance: QUETIAPINE FUMARATE
  5. XANAX [Concomitant]
     Active Substance: ALPRAZOLAM

REACTIONS (5)
  - Diabetes mellitus [Not Recovered/Not Resolved]
  - Pain in extremity [Unknown]
  - Off label use [Recovered/Resolved]
  - Headache [Unknown]
  - Presbyopia [Unknown]

NARRATIVE: CASE EVENT DATE: 201003
